FAERS Safety Report 7702169-X (Version None)
Quarter: 2011Q3

REPORT INFORMATION
  Report Type: 
  Country: None (occurrence: None)
  Receive Date: 20110822
  Receipt Date: 20110809
  Transmission Date: 20111222
  Serious: Yes (Other)
  Sender: FDA-Public Use
  Company Number: ES-MYLANLABS-2011S1016620

PATIENT
  Sex: Female

DRUGS (5)
  1. CELEBREX [Concomitant]
     Indication: PAIN
  2. AVODART [Suspect]
     Indication: PRODUCT USED FOR UNKNOWN INDICATION
  3. SIMVASTATIN [Concomitant]
     Indication: BLOOD CHOLESTEROL
  4. ENALAPRIL MALEATE [Concomitant]
     Indication: HYPERTENSION
  5. TAMSULOSIN HCL [Suspect]
     Indication: PRODUCT USED FOR UNKNOWN INDICATION

REACTIONS (4)
  - LOSS OF CONSCIOUSNESS [None]
  - MALAISE [None]
  - DRUG DISPENSING ERROR [None]
  - DIZZINESS [None]
